FAERS Safety Report 15550039 (Version 1)
Quarter: 2018Q4

REPORT INFORMATION
  Report Type: Spontaneous
  Country: US (occurrence: US)
  Receive Date: 20181025
  Receipt Date: 20181025
  Transmission Date: 20190205
  Serious: No
  Sender: FDA-Public Use
  Company Number: US-MYLANLABS-2018M1075106

PATIENT
  Age: 57 Year
  Sex: Female
  Weight: 81.64 kg

DRUGS (1)
  1. ESTRADIOL TRANSDERMAL SYSTEM [Suspect]
     Active Substance: ESTRADIOL
     Indication: PRODUCT USED FOR UNKNOWN INDICATION
     Dosage: UNK
     Route: 062
     Dates: start: 20180910, end: 20181005

REACTIONS (2)
  - Application site rash [Unknown]
  - Application site irritation [Unknown]

NARRATIVE: CASE EVENT DATE: 2018
